FAERS Safety Report 10994285 (Version 1)
Quarter: 2015Q2

REPORT INFORMATION
  Report Type: Report from Study
  Country: JP (occurrence: JP)
  Receive Date: 20150407
  Receipt Date: 20150407
  Transmission Date: 20150821
  Serious: Yes (Life-Threatening)
  Sender: FDA-Public Use
  Company Number: JP-SA-THYM-1003839

PATIENT
  Age: 10 Year
  Sex: Male
  Weight: 45 kg

DRUGS (22)
  1. SULFAMETHOXAZOLE AND TRIMETHOPRIM [Concomitant]
     Active Substance: SULFAMETHOXAZOLE\TRIMETHOPRIM
     Indication: ANTIFUNGAL PROPHYLAXIS
     Dosage: UNK
     Dates: start: 20100510
  2. PREDNISOLONE. [Concomitant]
     Active Substance: PREDNISOLONE
     Indication: HISTIOCYTOSIS HAEMATOPHAGIC
     Dosage: UNK
     Dates: start: 20100510
  3. FLUDARA [Suspect]
     Active Substance: FLUDARABINE PHOSPHATE
     Indication: MONOCYTOPENIA
     Dosage: 32 MG, QD
     Route: 065
     Dates: start: 20110726, end: 20110730
  4. POLYMYXIN B SULFATE. [Concomitant]
     Active Substance: POLYMYXIN B SULFATE
     Indication: DYSBACTERIOSIS
     Dosage: UNK
     Dates: start: 20110813, end: 20110919
  5. LASIX [Concomitant]
     Active Substance: FUROSEMIDE
     Indication: PROPHYLAXIS
     Dosage: UNK
     Dates: start: 20110803, end: 20110803
  6. FUNGUARD [Concomitant]
     Active Substance: MICAFUNGIN SODIUM
     Indication: ANTIFUNGAL PROPHYLAXIS
     Dosage: UNK
     Dates: start: 20110803, end: 20110824
  7. ORGARAN [Concomitant]
     Active Substance: DANAPAROID SODIUM
     Indication: PROPHYLAXIS
     Dosage: UNK
     Dates: start: 20110725, end: 20110913
  8. HALIZON [Concomitant]
     Indication: ANTIFUNGAL PROPHYLAXIS
     Dosage: UNK
     Dates: start: 20110813, end: 20110919
  9. CARBENIN [Concomitant]
     Active Substance: BETAMIPRON\PANIPENEM
     Indication: ANTIBIOTIC PROPHYLAXIS
     Dosage: UNK
     Dates: start: 20110810, end: 20110828
  10. ALKERAN [Concomitant]
     Active Substance: MELPHALAN
     Indication: MONOCYTOPENIA
     Dosage: UNK
     Dates: start: 20110731, end: 20110801
  11. THYMOGLOBULINE [Suspect]
     Active Substance: LAPINE T-LYMPHOCYTE IMMUNE GLOBULIN
     Indication: BONE MARROW CONDITIONING REGIMEN
     Dosage: 55 MG, QD
     Route: 065
     Dates: start: 20110731, end: 20110801
  12. URSODEOXYCHOLIC ACID [Concomitant]
     Active Substance: URSODIOL
     Indication: PROPHYLAXIS
     Dosage: UNK
     Dates: start: 20110813
  13. ACYCLOVIR. [Concomitant]
     Active Substance: ACYCLOVIR
     Indication: ANTIVIRAL PROPHYLAXIS
     Dosage: UNK
     Dates: start: 20110801
  14. CEFPIROME [Concomitant]
     Active Substance: CEFPIROME
     Indication: ANTIBIOTIC PROPHYLAXIS
     Dosage: UNK
     Dates: start: 20110803, end: 20110821
  15. METHOTREXATE [Concomitant]
     Active Substance: METHOTREXATE
     Indication: PROPHYLAXIS AGAINST GRAFT VERSUS HOST DISEASE
     Dosage: UNK
     Dates: start: 20110804, end: 20110813
  16. SOLU-MEDROL [Concomitant]
     Active Substance: METHYLPREDNISOLONE SODIUM SUCCINATE
     Indication: ANAPHYLACTIC REACTION
     Dosage: UNK
     Dates: start: 20110731, end: 20110802
  17. CORTRIL [Concomitant]
     Active Substance: HYDROCORTISONE
     Indication: ADRENAL INSUFFICIENCY
     Dosage: UNK
     Dates: start: 20110803, end: 20110822
  18. DEXART [Concomitant]
     Active Substance: DEXAMETHASONE SODIUM PHOSPHATE
     Indication: PROPHYLAXIS
     Dosage: UNK
     Dates: start: 20110803, end: 20110803
  19. PROGRAF [Concomitant]
     Active Substance: TACROLIMUS\TACROLIMUS ANHYDROUS
     Indication: PROPHYLAXIS AGAINST GRAFT VERSUS HOST DISEASE
     Dosage: UNK
     Dates: start: 20110802
  20. SOLU-MEDROL [Concomitant]
     Active Substance: METHYLPREDNISOLONE SODIUM SUCCINATE
     Indication: PROPHYLAXIS
     Dosage: UNK
     Dates: start: 20110731, end: 20110802
  21. GLYCEROL/FRUCTOSE [Concomitant]
     Indication: PROPHYLAXIS
     Dosage: UNK
     Dates: start: 20110802, end: 20110803
  22. FAMOTIDINE. [Concomitant]
     Active Substance: FAMOTIDINE
     Indication: GASTRITIS PROPHYLAXIS
     Dosage: UNK
     Dates: start: 20110826

REACTIONS (1)
  - Leukopenia [Recovered/Resolved]

NARRATIVE: CASE EVENT DATE: 20110805
